FAERS Safety Report 7360512-8 (Version None)
Quarter: 2011Q1

REPORT INFORMATION
  Report Type: 
  Country: None (occurrence: None)
  Receive Date: 20110318
  Receipt Date: 20110314
  Transmission Date: 20110831
  Serious: Yes (Other)
  Sender: FDA-Public Use
  Company Number: US-PFIZER INC-2011056010

PATIENT
  Sex: Female
  Weight: 113.38 kg

DRUGS (1)
  1. DEPO-PROVERA [Suspect]
     Indication: CONTRACEPTION
     Dosage: UNK
     Dates: start: 20090701, end: 20090701

REACTIONS (2)
  - BLOOD CHOLESTEROL INCREASED [None]
  - INFERTILITY FEMALE [None]
